FAERS Safety Report 9932718 (Version 1)
Quarter: 2014Q1

REPORT INFORMATION
  Report Type: Spontaneous
  Country: US (occurrence: US)
  Receive Date: 20140228
  Receipt Date: 20140228
  Transmission Date: 20141002
  Serious: No
  Sender: FDA-Public Use
  Company Number: US-GLAXOSMITHKLINE-A1026425A

PATIENT
  Age: 36 Year
  Sex: Female

DRUGS (3)
  1. LAMICTAL [Suspect]
     Indication: BIPOLAR DISORDER
     Dosage: 250MG PER DAY
     Route: 048
     Dates: start: 2003
  2. DEPAKOTE [Suspect]
     Indication: ORAL CONTRACEPTION
     Route: 048
     Dates: start: 201305
  3. DIAZEPAM [Concomitant]

REACTIONS (2)
  - Blood alcohol increased [Unknown]
  - Drug interaction [Unknown]
